FAERS Safety Report 17684047 (Version 1)
Quarter: 2020Q2

REPORT INFORMATION
  Report Type: Spontaneous
  Country: US (occurrence: US)
  Receive Date: 20200417
  Receipt Date: 20200417
  Transmission Date: 20200714
  Serious: Yes (Hospitalization)
  Sender: FDA-Public Use
  Company Number: None

PATIENT
  Age: 48 Year
  Sex: Female
  Weight: 99.3 kg

DRUGS (23)
  1. HYDROQUINONE. [Concomitant]
     Active Substance: HYDROQUINONE
  2. PROBIOTIC [Concomitant]
     Active Substance: PROBIOTICS NOS
  3. TRIAMCINOLONE [Concomitant]
     Active Substance: TRIAMCINOLONE
  4. VITAMIN D [Concomitant]
     Active Substance: VITAMIN D NOS
  5. METFORMIN [Concomitant]
     Active Substance: METFORMIN HYDROCHLORIDE
  6. TOPICAL [Concomitant]
  7. OMEGA [Concomitant]
  8. INSULIN GLARGINE [Concomitant]
     Active Substance: INSULIN GLARGINE
  9. FLUCONAZOLE. [Concomitant]
     Active Substance: FLUCONAZOLE
  10. HYDROCODONE [Concomitant]
     Active Substance: HYDROCODONE
  11. EMUAID CREAM [Concomitant]
  12. ONDANSETRON [Concomitant]
     Active Substance: ONDANSETRON
  13. OXYCODONE [Concomitant]
     Active Substance: OXYCODONE
  14. ESOMEPRAZOLE. [Concomitant]
     Active Substance: ESOMEPRAZOLE MAGNESIUM
  15. MULTIVITAMIN [Concomitant]
     Active Substance: VITAMINS
  16. ACETAMINOPHEN. [Concomitant]
     Active Substance: ACETAMINOPHEN
  17. NIVOLUMAB 480MG [Suspect]
     Active Substance: NIVOLUMAB
     Indication: CHORDOMA
     Dosage: ?          OTHER FREQUENCY:Q4WEEKS ;?
     Route: 042
  18. IBUPROFEN. [Concomitant]
     Active Substance: IBUPROFEN
  19. TOPICAL [Concomitant]
  20. CALCIUM CARBONATE. [Concomitant]
     Active Substance: CALCIUM CARBONATE
  21. MONISTAT [Concomitant]
     Active Substance: MICONAZOLE NITRATE
  22. RELATIMAB 160MG [Concomitant]
     Indication: CHONDROMA
     Dosage: ?          OTHER FREQUENCY:Q4WEEKS ;?
     Route: 042
  23. FERROUS SULFATE. [Concomitant]
     Active Substance: FERROUS SULFATE

REACTIONS (7)
  - Hemiparesis [None]
  - Headache [None]
  - Disease progression [None]
  - Dizziness [None]
  - Vision blurred [None]
  - Cerebrospinal fluid leakage [None]
  - Nausea [None]
